FAERS Safety Report 14315196 (Version 1)
Quarter: 2017Q4

REPORT INFORMATION
  Report Type: Spontaneous
  Country: US (occurrence: US)
  Receive Date: 20171221
  Receipt Date: 20171221
  Transmission Date: 20180321
  Serious: No
  Sender: FDA-Public Use
  Company Number: US-BAYER-2017-186694

PATIENT
  Sex: Male

DRUGS (2)
  1. CIPRO [Suspect]
     Active Substance: CIPROFLOXACIN HYDROCHLORIDE
     Indication: EPIDIDYMITIS
     Dosage: UNK
     Dates: start: 1990
  2. CIPRO [Suspect]
     Active Substance: CIPROFLOXACIN HYDROCHLORIDE
     Indication: EPIDIDYMITIS
     Dosage: 500 MG, UNK
     Dates: start: 2017

REACTIONS (11)
  - Tendon pain [None]
  - Myalgia [None]
  - Dyspepsia [Recovered/Resolved]
  - Tendon pain [Recovered/Resolved]
  - Malaise [Recovered/Resolved]
  - Dry eye [Recovered/Resolved]
  - Hypoaesthesia [Not Recovered/Not Resolved]
  - Neuralgia [Recovered/Resolved]
  - Burning sensation [Not Recovered/Not Resolved]
  - Bladder disorder [Recovered/Resolved]
  - Feeling abnormal [None]

NARRATIVE: CASE EVENT DATE: 1990
